FAERS Safety Report 17421123 (Version 1)
Quarter: 2020Q1

REPORT INFORMATION
  Report Type: Spontaneous
  Country: PL (occurrence: PL)
  Receive Date: 20200214
  Receipt Date: 20200214
  Transmission Date: 20200409
  Serious: Yes (Other)
  Sender: FDA-Public Use
  Company Number: PL-PFIZER INC-2020062543

PATIENT
  Age: 27 Year
  Sex: Female

DRUGS (4)
  1. LETROX [Suspect]
     Active Substance: LEVOTHYROXINE SODIUM
     Dosage: 50 UG, DAILY
     Dates: start: 20200121
  2. GLUCOPHAGE XR [Suspect]
     Active Substance: METFORMIN HYDROCHLORIDE
     Indication: INSULIN RESISTANCE
     Dosage: 500 MG, 1X/DAY IN THE EVENING
  3. DOSTINEX [Suspect]
     Active Substance: CABERGOLINE
     Indication: HYPERPROLACTINAEMIA
     Dosage: 0.5 MG, 3 TIMES A WEEK HALF A TABLET
     Dates: end: 20200113
  4. LETROX [Suspect]
     Active Substance: LEVOTHYROXINE SODIUM
     Indication: AUTOIMMUNE THYROID DISORDER
     Dosage: 37.5 UG, DAILY(HALF A TABLET 75)

REACTIONS (1)
  - Abortion spontaneous [Unknown]
